FAERS Safety Report 16439238 (Version 2)
Quarter: 2019Q2

REPORT INFORMATION
  Report Type: Spontaneous
  Country: JP (occurrence: JP)
  Receive Date: 20190617
  Receipt Date: 20190621
  Transmission Date: 20190711
  Serious: Yes (Hospitalization, Other)
  Sender: FDA-Public Use
  Company Number: JP-UCBSA-2019024307

PATIENT
  Age: 83 Year
  Sex: Male

DRUGS (7)
  1. GLYCEOL [Concomitant]
     Active Substance: GLYCERIN
     Indication: PRODUCT USED FOR UNKNOWN INDICATION
     Dosage: 200 MILLILITER, 2X/DAY (BID)
  2. RADICUT [Concomitant]
     Active Substance: EDARAVONE
     Indication: PRODUCT USED FOR UNKNOWN INDICATION
     Dosage: 30 MILLIGRAM, 2X/DAY (BID)
  3. CATACLOT [Concomitant]
     Indication: PRODUCT USED FOR UNKNOWN INDICATION
     Dosage: 40 MILLIGRAM, 2X/DAY (BID)
  4. VIMPAT [Suspect]
     Active Substance: LACOSAMIDE
     Indication: TEMPORAL LOBE EPILEPSY
     Dosage: 50 MILLIGRAM, 2X/DAY (BID)
     Route: 048
     Dates: end: 20190527
  5. MAGNESIUM OXIDE. [Concomitant]
     Active Substance: MAGNESIUM OXIDE
     Indication: PRODUCT USED FOR UNKNOWN INDICATION
     Dosage: 990 MG DAILY
     Route: 048
  6. ELNEOPA NO.2 [Concomitant]
     Active Substance: AMINO ACIDS\DEXTROSE\ELECTROLYTES NOS\MINERALS\VITAMINS
     Indication: PRODUCT USED FOR UNKNOWN INDICATION
     Dosage: 1 LITER
  7. CILOSTAZOL. [Concomitant]
     Active Substance: CILOSTAZOL
     Indication: PRODUCT USED FOR UNKNOWN INDICATION
     Dosage: 50 MILLIGRAM, 2X/DAY (BID)
     Route: 048

REACTIONS (1)
  - Cerebral infarction [Not Recovered/Not Resolved]

NARRATIVE: CASE EVENT DATE: 20190527
